FAERS Safety Report 6397825-2 (Version None)
Quarter: 2009Q4

REPORT INFORMATION
  Report Type: 
  Country: None (occurrence: None)
  Receive Date: 20091012
  Receipt Date: 20091005
  Transmission Date: 20100525
  Serious: Yes (Other)
  Sender: FDA-Public Use
  Company Number: US-GILEAD-2009-0024158

PATIENT
  Sex: Male
  Weight: 80.812 kg

DRUGS (6)
  1. LETAIRIS [Suspect]
     Indication: PULMONARY ARTERIAL HYPERTENSION
     Route: 048
     Dates: start: 20090820
  2. WARFARIN SODIUM [Concomitant]
  3. FUROSEMIDE [Concomitant]
  4. GINKOBA [Concomitant]
  5. VITAMIN B-100 [Concomitant]
  6. ASCORBIC ACID [Concomitant]

REACTIONS (2)
  - BLOOD BILIRUBIN ABNORMAL [None]
  - HEPATOMEGALY [None]
